FAERS Safety Report 13858556 (Version 1)
Quarter: 2017Q3

REPORT INFORMATION
  Report Type: Report from Study
  Country: NO (occurrence: NO)
  Receive Date: 20170811
  Receipt Date: 20170811
  Transmission Date: 20171127
  Serious: Yes (Death)
  Sender: FDA-Public Use
  Company Number: NO-ROCHE-1977501

PATIENT
  Age: 80 Year
  Sex: Male

DRUGS (2)
  1. RITUXIMAB. [Suspect]
     Active Substance: RITUXIMAB
     Indication: COLD TYPE HAEMOLYTIC ANAEMIA
     Dosage: CYCLES OF RITUXIMAB 375MG/M2 DAY 1
     Route: 042
  2. BENDAMUSTINE [Suspect]
     Active Substance: BENDAMUSTINE
     Indication: COLD TYPE HAEMOLYTIC ANAEMIA
     Dosage: DAY 1-2 WITH 28 DAYS
     Route: 065

REACTIONS (2)
  - Hypothermia [Fatal]
  - Asthenia [Fatal]
